FAERS Safety Report 12136817 (Version 1)
Quarter: 2016Q1

REPORT INFORMATION
  Report Type: Spontaneous
  Country: ES (occurrence: ES)
  Receive Date: 20160302
  Receipt Date: 20160302
  Transmission Date: 20160526
  Serious: Yes (Other)
  Sender: FDA-Public Use
  Company Number: ES-NOVOPROD-481466

PATIENT
  Age: 84 Year
  Sex: Male

DRUGS (13)
  1. SEGURIL [Suspect]
     Active Substance: FUROSEMIDE
     Indication: ABDOMINAL SEPSIS
     Dosage: 0.1 ML
     Route: 042
     Dates: start: 20150530, end: 20150601
  2. MORPHINE HYDROCHLORIDE [Suspect]
     Active Substance: MORPHINE HYDROCHLORIDE
     Indication: ABDOMINAL SEPSIS
     Dosage: UNK
     Route: 042
     Dates: start: 20150529, end: 20150602
  3. URBASON                            /00049601/ [Suspect]
     Active Substance: METHYLPREDNISOLONE
     Indication: PRODUCT USED FOR UNKNOWN INDICATION
     Dosage: 40 MG, BID
     Route: 042
     Dates: start: 20150531
  4. PRIMPERAN [Concomitant]
     Active Substance: METOCLOPRAMIDE HYDROCHLORIDE
     Dosage: 10MG/12H
     Route: 042
     Dates: start: 20150604, end: 20150609
  5. PARACETAMOL [Concomitant]
     Active Substance: ACETAMINOPHEN
     Dosage: 1 G, TID
     Route: 042
     Dates: start: 20150606, end: 20150609
  6. ACTRAPID [Suspect]
     Active Substance: INSULIN HUMAN
     Indication: PRODUCT USED FOR UNKNOWN INDICATION
     Dosage: UNK
     Route: 065
     Dates: start: 20160529
  7. PANTOPRAZOLE [Suspect]
     Active Substance: PANTOPRAZOLE SODIUM
     Indication: GASTRITIS PROPHYLAXIS
     Dosage: 40 MG, QD
     Route: 042
     Dates: start: 20150529
  8. CLEXANE [Suspect]
     Active Substance: ENOXAPARIN SODIUM
     Indication: THROMBOSIS PROPHYLAXIS
     Dosage: 4000 IU, QD
     Route: 058
     Dates: start: 20150531, end: 20150601
  9. ADOLONTA [Concomitant]
     Active Substance: TRAMADOL HYDROCHLORIDE
     Dosage: 1VIAL/8H
     Route: 042
     Dates: start: 20150602, end: 20150609
  10. PROPOFOL. [Suspect]
     Active Substance: PROPOFOL
     Indication: ABDOMINAL SEPSIS
     Dosage: UNK
     Route: 042
     Dates: start: 20150529, end: 20150530
  11. TAZOCEL [Suspect]
     Active Substance: PIPERACILLIN SODIUM\TAZOBACTAM SODIUM
     Indication: ABDOMINAL SEPSIS
     Dosage: 3 DF, TID
     Route: 042
     Dates: start: 20150529
  12. VANCOMYCIN [Suspect]
     Active Substance: VANCOMYCIN
     Indication: ABDOMINAL SEPSIS
     Dosage: UNK, QD
     Route: 042
     Dates: start: 20150531, end: 20150602
  13. CLEXANE [Concomitant]
     Active Substance: ENOXAPARIN SODIUM
     Dosage: 1/12H
     Dates: start: 20150531, end: 20150609

REACTIONS (1)
  - Thrombocytopenia [Recovered/Resolved]

NARRATIVE: CASE EVENT DATE: 20150531
